FAERS Safety Report 6792181-X (Version None)
Quarter: 2010Q2

REPORT INFORMATION
  Report Type: 
  Country: None (occurrence: None)
  Receive Date: 20100624
  Receipt Date: 20090713
  Transmission Date: 20101027
  Serious: Yes (Other)
  Sender: FDA-Public Use
  Company Number: US-PFIZER INC-2008059923

PATIENT
  Sex: Female
  Weight: 81.63 kg

DRUGS (6)
  1. PROVERA [Suspect]
     Indication: HORMONE REPLACEMENT THERAPY
     Dosage: UNK
     Route: 048
     Dates: start: 19940101, end: 19980101
  2. MEDROXYPROGESTERONE ACETATE [Suspect]
     Indication: HORMONE REPLACEMENT THERAPY
     Dosage: UNK
     Route: 048
     Dates: start: 19980101, end: 20000101
  3. ESTRACE [Suspect]
     Indication: HORMONE REPLACEMENT THERAPY
     Dosage: UNK
     Route: 048
     Dates: start: 19940101, end: 20000101
  4. ESTRATEST H.S. [Suspect]
     Indication: HORMONE REPLACEMENT THERAPY
     Dosage: UNK
     Route: 048
  5. LOPRESSOR [Concomitant]
     Indication: HYPERTENSION
     Dosage: 50 MG, 1X/DAY
     Dates: start: 19930101
  6. PENTASA [Concomitant]
     Indication: CROHN'S DISEASE
     Dosage: UNK
     Dates: start: 19930101

REACTIONS (1)
  - BREAST CANCER FEMALE [None]
